FAERS Safety Report 11080348 (Version 1)
Quarter: 2015Q2

REPORT INFORMATION
  Report Type: Spontaneous
  Country: US (occurrence: None)
  Receive Date: 20150429
  Receipt Date: 20150429
  Transmission Date: 20150821
  Serious: Yes (Hospitalization)
  Sender: FDA-Public Use
  Company Number: PL15-16

PATIENT
  Sex: Female

DRUGS (1)
  1. SIMPLE TRUTH ZINC [Suspect]
     Active Substance: ZINC\ZINC CHLORIDE
     Route: 048
     Dates: start: 20150403

REACTIONS (10)
  - Fluid intake restriction [None]
  - Throat tightness [None]
  - Throat irritation [None]
  - Foreign body [None]
  - Oesophageal injury [None]
  - Oesophageal pain [None]
  - Feeding disorder [None]
  - Dysphagia [None]
  - Weight decreased [None]
  - Dehydration [None]

NARRATIVE: CASE EVENT DATE: 20150403
